FAERS Safety Report 25503526 (Version 1)
Quarter: 2025Q3

REPORT INFORMATION
  Report Type: Spontaneous
  Country: US (occurrence: None)
  Receive Date: 20250701
  Receipt Date: 20250701
  Transmission Date: 20251021
  Serious: No
  Sender: FDA-CTU
  Company Number: None

PATIENT
  Sex: Female

DRUGS (1)
  1. KESIMPTA [Suspect]
     Active Substance: OFATUMUMAB
     Indication: Multiple sclerosis
     Route: 048
     Dates: start: 20241104

REACTIONS (8)
  - Nausea [None]
  - Headache [None]
  - Dizziness [None]
  - Fatigue [None]
  - Paraesthesia oral [None]
  - Hypoaesthesia oral [None]
  - Paraesthesia oral [None]
  - Hypoaesthesia oral [None]
